FAERS Safety Report 4394627-3 (Version None)
Quarter: 2004Q3

REPORT INFORMATION
  Report Type: 
  Country: None (occurrence: None)
  Receive Date: 20040706
  Receipt Date: 20040622
  Transmission Date: 20050211
  Serious: Yes (Other)
  Sender: FDA-Public Use
  Company Number: 2004042432

PATIENT
  Age: 77 Year
  Sex: Female
  Weight: 73.9363 kg

DRUGS (6)
  1. LIPITOR [Suspect]
     Indication: BLOOD CHOLESTEROL
     Dosage: 10 MG (10 MG, 1 IN 1 D), ORAL
     Route: 048
     Dates: end: 20040621
  2. METOPROLOL SUCCINATE [Concomitant]
  3. GLYBURIDE [Concomitant]
  4. VALSARTAN (VALSARTAN) [Concomitant]
  5. VITAMINS NOS [Concomitant]
  6. ACETYLSALICYIC ACID (ACETYLSALICYLIC ACID) [Concomitant]

REACTIONS (5)
  - CHEST WALL PAIN [None]
  - CORONARY ARTERY OCCLUSION [None]
  - DYSPNOEA [None]
  - MYALGIA [None]
  - PAIN IN EXTREMITY [None]
